FAERS Safety Report 9885102 (Version 1)
Quarter: 2014Q1

REPORT INFORMATION
  Report Type: Spontaneous
  Country: US (occurrence: US)
  Receive Date: 20140210
  Receipt Date: 20140210
  Transmission Date: 20141002
  Serious: Yes (Other)
  Sender: FDA-Public Use
  Company Number: US-OTSUKA-US-2013-11012

PATIENT
  Sex: 0

DRUGS (6)
  1. BUSULFEX [Suspect]
     Indication: STEM CELL TRANSPLANT
     Dosage: 130 MG/M2, DAILY DOSE
     Route: 042
  2. FLUDARABINE [Suspect]
     Indication: STEM CELL TRANSPLANT
     Dosage: 40 MG/M2, DAILY DOSE
  3. PHENYTOIN [Concomitant]
     Dosage: 300 MG MILLIGRAM(S), UNKNOWN
     Route: 048
  4. FILGRASTIM [Concomitant]
     Dosage: 05 ?G/KG, DAILY DOSE
     Route: 058
  5. TACROLIMUS [Concomitant]
     Indication: PROPHYLAXIS
     Dosage: UNK, UNKNOWN
     Route: 065
  6. METHOTREXATE [Concomitant]
     Dosage: 05 MG/M2, UNK

REACTIONS (29)
  - Neuropathy peripheral [Unknown]
  - Pulmonary haemorrhage [Unknown]
  - Pulmonary oedema [Unknown]
  - Palmar-plantar erythrodysaesthesia syndrome [Unknown]
  - Convulsion [Unknown]
  - Cystitis haemorrhagic [Unknown]
  - Pleural effusion [Unknown]
  - Arrhythmia [Unknown]
  - Blood creatinine increased [Unknown]
  - Pericardial effusion [Unknown]
  - Influenza like illness [Unknown]
  - Electrolyte imbalance [Unknown]
  - Ejection fraction decreased [Unknown]
  - Mental status changes [Unknown]
  - Hypoalbuminaemia [Unknown]
  - Diarrhoea [Unknown]
  - Blood alkaline phosphatase increased [Unknown]
  - Vomiting [Unknown]
  - Nausea [Unknown]
  - Mucosal inflammation [Unknown]
  - Abdominal pain [Unknown]
  - Rash [Unknown]
  - Headache [Unknown]
  - Hyperglycaemia [Unknown]
  - Hypertension [Unknown]
  - Hypotension [Unknown]
  - Hyperbilirubinaemia [Unknown]
  - Transaminases increased [Unknown]
  - Off label use [Unknown]
